FAERS Safety Report 16717659 (Version 1)
Quarter: 2019Q3

REPORT INFORMATION
  Report Type: Spontaneous
  Country: US (occurrence: US)
  Receive Date: 20190819
  Receipt Date: 20190819
  Transmission Date: 20191005
  Serious: No
  Sender: FDA-Public Use
  Company Number: US-SA-2019SA224018

PATIENT
  Age: 57 Year
  Sex: Male

DRUGS (1)
  1. DUPIXENT [Suspect]
     Active Substance: DUPILUMAB
     Dosage: UNK
     Dates: start: 201905

REACTIONS (7)
  - Cough [Unknown]
  - Forced expiratory volume abnormal [Unknown]
  - Asthma [Unknown]
  - Pruritus [Unknown]
  - Skin exfoliation [Unknown]
  - Fractional exhaled nitric oxide abnormal [Unknown]
  - Rash [Unknown]
